FAERS Safety Report 8290308 (Version 2)
Quarter: 2013Q2

REPORT INFORMATION
  Report Type: Spontaneous
  Country: US (occurrence: None)
  Receive Date: 20111121
  Receipt Date: 20121120
  Transmission Date: 20140414
  Serious: No
  Sender: FDA-Public Use
  Company Number: 1000022896

PATIENT
  Age: 44 Year
  Sex: Male

DRUGS (4)
  1. VIIBRYD [Suspect]
     Indication: ANXIETY
     Route: 048
     Dates: start: 201107, end: 2011
  2. VIIBRYD [Suspect]
     Indication: DEPRESSION
     Route: 048
     Dates: start: 201107, end: 2011
  3. VIIBRYD [Suspect]
     Indication: ANXIETY
     Route: 048
     Dates: start: 2011, end: 20110803
  4. VIIBRYD [Suspect]
     Indication: DEPRESSION
     Route: 048
     Dates: start: 2011, end: 20110803

REACTIONS (9)
  - DIARRHOEA [None]
  - LYMPHADENOPATHY [None]
  - HEADACHE [None]
  - NIGHT SWEATS [None]
  - MUSCLE TWITCHING [None]
  - NERVOUS SYSTEM DISORDER [None]
  - ARTHRALGIA [None]
  - JOINT STIFFNESS [None]
  - No adverse event [None]
